FAERS Safety Report 8328199-5 (Version None)
Quarter: 2012Q2

REPORT INFORMATION
  Report Type: 
  Country: None (occurrence: None)
  Receive Date: 20120502
  Receipt Date: 20120427
  Transmission Date: 20120825
  Serious: Yes (Other)
  Sender: FDA-Public Use
  Company Number: US-PFIZER INC-2012104548

PATIENT
  Sex: Male

DRUGS (1)
  1. VIAGRA [Suspect]
     Dosage: 10 TABLETS OF 200MG ONCE
     Route: 048
     Dates: start: 20120426

REACTIONS (6)
  - PENILE HAEMORRHAGE [None]
  - PENIS DISORDER [None]
  - PENILE PAIN [None]
  - INCORRECT DOSE ADMINISTERED [None]
  - ERECTION INCREASED [None]
  - HEADACHE [None]
